FAERS Safety Report 7585941-9 (Version None)
Quarter: 2011Q2

REPORT INFORMATION
  Report Type: 
  Country: None (occurrence: None)
  Receive Date: 20110603
  Receipt Date: 20110506
  Transmission Date: 20111010
  Serious: No
  Sender: FDA-Public Use
  Company Number: 2011SP021119

PATIENT
  Age: 59 Year
  Sex: Female

DRUGS (4)
  1. CLONAZEPAM [Concomitant]
  2. AMBIEN [Concomitant]
  3. SAPHRIS [Suspect]
     Indication: PRODUCT USED FOR UNKNOWN INDICATION
     Dosage: 5 MG;BID;SL
     Route: 060
     Dates: start: 20100501, end: 20110430
  4. CYMBALTA [Concomitant]

REACTIONS (2)
  - ARTHRITIS [None]
  - DYSARTHRIA [None]
